FAERS Safety Report 6731566-4 (Version None)
Quarter: 2010Q2

REPORT INFORMATION
  Report Type: 
  Country: None (occurrence: None)
  Receive Date: 20100519
  Receipt Date: 20100511
  Transmission Date: 20101027
  Serious: No
  Sender: FDA-Public Use
  Company Number: US-BIOGENIDEC-2010BI015932

PATIENT
  Age: 52 Year
  Sex: Male

DRUGS (3)
  1. AVONEX [Suspect]
     Indication: MULTIPLE SCLEROSIS
     Route: 030
     Dates: start: 20080812, end: 20080812
  2. AVONEX [Suspect]
     Route: 030
     Dates: start: 20100205, end: 20100205
  3. AVONEX [Suspect]
     Route: 030
     Dates: start: 20100413

REACTIONS (2)
  - MUSCLE TIGHTNESS [None]
  - NASOPHARYNGITIS [None]
